FAERS Safety Report 5808838-0 (Version None)
Quarter: 2008Q3

REPORT INFORMATION
  Report Type: 
  Country: None (occurrence: None)
  Receive Date: 20080710
  Receipt Date: 20080710
  Transmission Date: 20090109
  Serious: No
  Sender: FDA-Public Use
  Company Number: None

PATIENT
  Age: 23 Year
  Sex: Male
  Weight: 104 kg

DRUGS (1)
  1. INFLIXMAB [Suspect]
     Dosage: 300 MG ONCE IV
     Route: 042
     Dates: start: 20080707, end: 20080707

REACTIONS (8)
  - BLOOD PRESSURE DECREASED [None]
  - CARDIO-RESPIRATORY ARREST [None]
  - CHEST DISCOMFORT [None]
  - CHILLS [None]
  - FLUSHING [None]
  - INFUSION RELATED REACTION [None]
  - OXYGEN SATURATION DECREASED [None]
  - RESTLESSNESS [None]
